FAERS Safety Report 15995286 (Version 2)
Quarter: 2019Q2

REPORT INFORMATION
  Report Type: Spontaneous
  Country: JP (occurrence: JP)
  Receive Date: 20190222
  Receipt Date: 20190427
  Transmission Date: 20190711
  Serious: Yes (Other)
  Sender: FDA-Public Use
  Company Number: JP-ROCHE-2268742

PATIENT
  Age: 36 Year
  Sex: Female

DRUGS (4)
  1. XOFLUZA [Suspect]
     Active Substance: BALOXAVIR MARBOXIL
     Indication: INFLUENZA
     Route: 048
     Dates: start: 20190208, end: 20190208
  2. ASVERIN (TIPEPIDINE HIBENZATE) [Concomitant]
     Active Substance: TIPEPIDINE HIBENZATE
     Route: 048
  3. CALONAL [Concomitant]
     Active Substance: ACETAMINOPHEN
     Route: 048
  4. MUCODYNE [Concomitant]
     Active Substance: CARBOCYSTEINE
     Route: 048

REACTIONS (2)
  - Drug eruption [Unknown]
  - Anaphylactic reaction [Unknown]

NARRATIVE: CASE EVENT DATE: 20190208
